FAERS Safety Report 6915070-6 (Version None)
Quarter: 2010Q3

REPORT INFORMATION
  Report Type: 
  Country: None (occurrence: None)
  Receive Date: 20100805
  Receipt Date: 20100805
  Transmission Date: 20110219
  Serious: Yes (Hospitalization)
  Sender: FDA-Public Use
  Company Number: None

PATIENT
  Sex: Male
  Weight: 88.2 kg

DRUGS (3)
  1. OXALIPLATIN [Suspect]
     Indication: GASTRIC CANCER
     Dosage: 130MG/M2 D1, 8, 15 EACH CYCLE IV
     Route: 042
     Dates: start: 20090821
  2. CETUXIMAB [Suspect]
     Indication: GASTRIC CANCER
     Dosage: 250 MG/M2 D1, 8, 15 EACH CYCLE IV
     Route: 048
     Dates: start: 20090821
  3. XELODA [Suspect]
     Indication: GASTRIC CANCER
     Dosage: 850 MG/M2 D1-14 EACH CYCLE, BID PO
     Route: 048
     Dates: start: 20090821

REACTIONS (9)
  - BILIARY TRACT DISORDER [None]
  - BLOOD BILIRUBIN INCREASED [None]
  - DECREASED APPETITE [None]
  - MALIGNANT NEOPLASM PROGRESSION [None]
  - MASS [None]
  - METASTATIC GASTRIC CANCER [None]
  - PRURITUS [None]
  - TUMOUR COMPRESSION [None]
  - YELLOW SKIN [None]
